FAERS Safety Report 4673908-X (Version None)
Quarter: 2005Q2

REPORT INFORMATION
  Report Type: 
  Country: None (occurrence: None)
  Receive Date: 20050523
  Receipt Date: 20050404
  Transmission Date: 20051028
  Serious: No
  Sender: FDA-Public Use
  Company Number: HQWYE964211APR05

PATIENT
  Age: 25 Year
  Sex: Male
  Weight: 90.8 kg

DRUGS (2)
  1. ALAVERT D-12 (LORATADINE/PSEUDOEPHEDRINE SULFATE, TABLET, EXTENDED REL [Suspect]
     Indication: HYPERSENSITIVITY
     Dosage: 1 TABLET, ONCE, ORAL
     Route: 048
     Dates: start: 20040401, end: 20050401
  2. EFFEXOR XR [Concomitant]

REACTIONS (2)
  - DYSKINESIA [None]
  - TREMOR [None]
